FAERS Safety Report 5733920-6 (Version None)
Quarter: 2008Q2

REPORT INFORMATION
  Report Type: 
  Country: None (occurrence: None)
  Receive Date: 20080509
  Receipt Date: 20080506
  Transmission Date: 20081010
  Serious: Yes (Hospitalization)
  Sender: FDA-Public Use
  Company Number: US-BOEHRINGER INGELHEIM GMBH, GERMANY-2008-BP-07139BP

PATIENT
  Sex: Female

DRUGS (3)
  1. COMBIVENT [Suspect]
     Indication: CHRONIC OBSTRUCTIVE PULMONARY DISEASE
     Route: 055
     Dates: start: 20080201, end: 20080501
  2. ADVAIR HFA [Concomitant]
  3. OXYGEN [Concomitant]

REACTIONS (3)
  - DYSPNOEA [None]
  - OEDEMA MOUTH [None]
  - STOMATITIS [None]
